FAERS Safety Report 25277651 (Version 5)
Quarter: 2025Q3

REPORT INFORMATION
  Report Type: Spontaneous
  Country: EU (occurrence: EU)
  Receive Date: 20250507
  Receipt Date: 20250701
  Transmission Date: 20251021
  Serious: Yes (Other)
  Sender: JOHNSON AND JOHNSON
  Company Number: EU-SANDOZ-SDZ2025PL019670

PATIENT
  Age: 42 Year
  Sex: Male

DRUGS (69)
  1. TREMFYA [Suspect]
     Active Substance: GUSELKUMAB
     Indication: Product used for unknown indication
     Route: 058
  2. TREMFYA [Suspect]
     Active Substance: GUSELKUMAB
  3. TREMFYA [Suspect]
     Active Substance: GUSELKUMAB
     Route: 058
  4. TREMFYA [Suspect]
     Active Substance: GUSELKUMAB
     Route: 058
  5. TREMFYA [Suspect]
     Active Substance: GUSELKUMAB
     Route: 058
  6. REMICADE [Suspect]
     Active Substance: INFLIXIMAB
     Indication: Product used for unknown indication
     Route: 042
  7. REMICADE [Suspect]
     Active Substance: INFLIXIMAB
  8. REMICADE [Suspect]
     Active Substance: INFLIXIMAB
  9. REMICADE [Suspect]
     Active Substance: INFLIXIMAB
  10. REMICADE [Suspect]
     Active Substance: INFLIXIMAB
  11. STELARA [Suspect]
     Active Substance: USTEKINUMAB
     Indication: Product used for unknown indication
     Route: 058
  12. STELARA [Suspect]
     Active Substance: USTEKINUMAB
  13. STELARA [Suspect]
     Active Substance: USTEKINUMAB
  14. STELARA [Suspect]
     Active Substance: USTEKINUMAB
  15. ACITRETIN [Suspect]
     Active Substance: ACITRETIN
     Indication: Psoriasis
     Dosage: 0.5 MG/KG (0.5 MG/KG B.W)
     Dates: start: 201102, end: 2013
  16. ACITRETIN [Suspect]
     Active Substance: ACITRETIN
  17. ACITRETIN [Suspect]
     Active Substance: ACITRETIN
  18. INFLIXIMAB [Suspect]
     Active Substance: INFLIXIMAB
     Indication: Product used for unknown indication
     Route: 065
  19. INFLIXIMAB [Suspect]
     Active Substance: INFLIXIMAB
     Route: 065
  20. METHOTREXATE [Suspect]
     Active Substance: METHOTREXATE
     Indication: Psoriasis
     Dosage: 20 MG, QW
     Route: 065
  21. METHOTREXATE [Suspect]
     Active Substance: METHOTREXATE
     Dosage: 20 MG, QW, WEEKLY (QWK)
     Route: 048
  22. METHOTREXATE [Suspect]
     Active Substance: METHOTREXATE
     Dosage: 20 MG, QW
     Route: 065
  23. METHOTREXATE [Suspect]
     Active Substance: METHOTREXATE
     Dosage: 20 MG, QW, WEEKLY
  24. METHOTREXATE [Suspect]
     Active Substance: METHOTREXATE
     Dosage: 20 MG, QW
  25. METHOTREXATE [Suspect]
     Active Substance: METHOTREXATE
     Dosage: 20 MG, QW
  26. METHOTREXATE [Suspect]
     Active Substance: METHOTREXATE
     Dosage: PATIENT ROA: ORAL?20 MG, QW
     Route: 048
  27. METHOTREXATE [Suspect]
     Active Substance: METHOTREXATE
     Dosage: 20 MG, QW
  28. METHOTREXATE [Suspect]
     Active Substance: METHOTREXATE
     Dosage: 20 MG, QW
     Route: 065
  29. METHOTREXATE [Suspect]
     Active Substance: METHOTREXATE
     Dosage: 20 MG, QW
  30. METHOTREXATE [Suspect]
     Active Substance: METHOTREXATE
     Dosage: 20 MG, QW
  31. SECUKINUMAB [Suspect]
     Active Substance: SECUKINUMAB
     Indication: Product used for unknown indication
     Route: 065
  32. SECUKINUMAB [Suspect]
     Active Substance: SECUKINUMAB
     Route: 065
  33. SECUKINUMAB [Suspect]
     Active Substance: SECUKINUMAB
     Route: 065
  34. ETANERCEPT [Suspect]
     Active Substance: ETANERCEPT
     Indication: Product used for unknown indication
     Route: 065
     Dates: start: 201304
  35. ETANERCEPT [Suspect]
     Active Substance: ETANERCEPT
     Route: 065
  36. TILDRAKIZUMAB [Suspect]
     Active Substance: TILDRAKIZUMAB
     Indication: Product used for unknown indication
  37. TILDRAKIZUMAB [Suspect]
     Active Substance: TILDRAKIZUMAB
     Route: 065
  38. TILDRAKIZUMAB [Suspect]
     Active Substance: TILDRAKIZUMAB
     Route: 065
  39. TILDRAKIZUMAB [Suspect]
     Active Substance: TILDRAKIZUMAB
     Route: 065
  40. RISANKIZUMAB [Suspect]
     Active Substance: RISANKIZUMAB
     Indication: Product used for unknown indication
     Route: 065
  41. RISANKIZUMAB [Suspect]
     Active Substance: RISANKIZUMAB
     Route: 065
  42. RISANKIZUMAB [Suspect]
     Active Substance: RISANKIZUMAB
     Route: 058
  43. RISANKIZUMAB [Suspect]
     Active Substance: RISANKIZUMAB
     Route: 065
  44. CERTOLIZUMAB PEGOL [Suspect]
     Active Substance: CERTOLIZUMAB PEGOL
     Indication: Product used for unknown indication
     Route: 065
  45. CERTOLIZUMAB PEGOL [Suspect]
     Active Substance: CERTOLIZUMAB PEGOL
     Route: 065
  46. CERTOLIZUMAB PEGOL [Suspect]
     Active Substance: CERTOLIZUMAB PEGOL
     Route: 065
  47. CERTOLIZUMAB PEGOL [Suspect]
     Active Substance: CERTOLIZUMAB PEGOL
     Route: 065
  48. BIMEKIZUMAB [Suspect]
     Active Substance: BIMEKIZUMAB
     Indication: Product used for unknown indication
     Route: 065
  49. BIMEKIZUMAB [Suspect]
     Active Substance: BIMEKIZUMAB
     Route: 065
  50. BIMEKIZUMAB [Suspect]
     Active Substance: BIMEKIZUMAB
  51. BIMEKIZUMAB [Suspect]
     Active Substance: BIMEKIZUMAB
     Route: 065
  52. IXEKIZUMAB [Suspect]
     Active Substance: IXEKIZUMAB
     Indication: Product used for unknown indication
     Route: 065
  53. IXEKIZUMAB [Suspect]
     Active Substance: IXEKIZUMAB
     Route: 065
  54. IXEKIZUMAB [Suspect]
     Active Substance: IXEKIZUMAB
     Route: 065
  55. SKYRIZI [Suspect]
     Active Substance: RISANKIZUMAB-RZAA
     Indication: Product used for unknown indication
     Route: 058
  56. ADALIMUMAB [Suspect]
     Active Substance: ADALIMUMAB
     Indication: Psoriasis
     Dosage: 40 MG, EVERY 2 WEEKS (40 MG/2 WEEKS)
     Route: 065
  57. ADALIMUMAB [Suspect]
     Active Substance: ADALIMUMAB
     Dosage: 20 MG, WEEKLY (QW)
     Route: 048
  58. ADALIMUMAB [Suspect]
     Active Substance: ADALIMUMAB
     Dosage: 20 MG, WEEKLY (QW)
     Route: 048
  59. ADALIMUMAB [Suspect]
     Active Substance: ADALIMUMAB
     Dosage: 20 MG, QW
  60. ADALIMUMAB [Suspect]
     Active Substance: ADALIMUMAB
     Dosage: 20 MG, QW
  61. ADALIMUMAB [Suspect]
     Active Substance: ADALIMUMAB
     Dosage: 40 MG (40 MG/2 WEEKS)
     Route: 065
  62. ADALIMUMAB [Suspect]
     Active Substance: ADALIMUMAB
     Dosage: PATIENT ROA: SUBCUTANEOUS? 40 MG (40 MG/2 WEEKS)
  63. ADALIMUMAB [Suspect]
     Active Substance: ADALIMUMAB
     Dosage: 20 MG, WEEKLY (QW)
  64. ADALIMUMAB [Suspect]
     Active Substance: ADALIMUMAB
     Dosage: 20 MG, WEEKLY (QW)
  65. ADALIMUMAB [Suspect]
     Active Substance: ADALIMUMAB
     Dosage: 40 MG (40 MG/2 WEEKS)
     Route: 065
  66. ADALIMUMAB [Suspect]
     Active Substance: ADALIMUMAB
     Route: 065
  67. ADALIMUMAB [Suspect]
     Active Substance: ADALIMUMAB
     Dosage: 20 MG, WEEKLY (QW)
     Route: 048
  68. ADALIMUMAB [Suspect]
     Active Substance: ADALIMUMAB
     Route: 065
  69. USTEKINUMAB [Suspect]
     Active Substance: USTEKINUMAB
     Indication: Product used for unknown indication
     Route: 065

REACTIONS (4)
  - Condition aggravated [Unknown]
  - Psoriasis [Unknown]
  - Drug ineffective [Unknown]
  - Drug ineffective [Unknown]
